FAERS Safety Report 9531603 (Version 1)
Quarter: 2013Q2

REPORT INFORMATION
  Report Type: Spontaneous
  Country: US (occurrence: None)
  Receive Date: 20130419
  Receipt Date: 20130419
  Transmission Date: 20140414
  Serious: Yes (Other)
  Sender: FDA-Public Use
  Company Number: FK201200662

PATIENT
  Age: 64 Year
  Sex: Female

DRUGS (1)
  1. HEPARIN SODIIUM [Suspect]
     Indication: CARDIAC OPERATION
     Dosage: 5000 USP UNITS, ONCE, IV
     Route: 042
     Dates: start: 20120227, end: 20120227

REACTIONS (1)
  - Blood pressure increased [None]
